FAERS Safety Report 5718914-9 (Version None)
Quarter: 2008Q2

REPORT INFORMATION
  Report Type: 
  Country: None (occurrence: None)
  Receive Date: 20080425
  Receipt Date: 20080415
  Transmission Date: 20081010
  Serious: Yes (Hospitalization, Other)
  Sender: FDA-Public Use
  Company Number: US-MERCK-0707USA02679

PATIENT
  Age: 79 Year
  Sex: Female

DRUGS (6)
  1. FOSAMAX [Suspect]
     Indication: OSTEOPOROSIS
     Route: 048
     Dates: start: 19980101, end: 20060605
  2. FUROSEMIDE [Concomitant]
     Indication: CARDIAC DISORDER
     Route: 065
     Dates: start: 20040101
  3. LESCOL [Concomitant]
     Indication: BLOOD CHOLESTEROL INCREASED
     Route: 065
     Dates: start: 19920101
  4. INSULIN [Concomitant]
     Indication: DIABETES MELLITUS
     Route: 051
     Dates: start: 19670101
  5. LOTENSIN [Concomitant]
     Indication: HYPERTENSION
     Route: 065
     Dates: start: 19920101
  6. NITROGLYCERIN [Concomitant]
     Indication: CARDIAC DISORDER
     Route: 065
     Dates: start: 20060101

REACTIONS (7)
  - ABSCESS JAW [None]
  - FEELING ABNORMAL [None]
  - FISTULA DISCHARGE [None]
  - JAW FRACTURE [None]
  - LEG AMPUTATION [None]
  - OSTEOMYELITIS [None]
  - OSTEONECROSIS [None]
